FAERS Safety Report 15790442 (Version 2)
Quarter: 2019Q1

REPORT INFORMATION
  Report Type: Spontaneous
  Country: JP (occurrence: JP)
  Receive Date: 20190104
  Receipt Date: 20190201
  Transmission Date: 20190417
  Serious: Yes (Hospitalization, Other)
  Sender: FDA-Public Use
  Company Number: JP-NOVOPROD-637172

PATIENT
  Age: 29 Year
  Sex: Female

DRUGS (12)
  1. NOVORAPID [Suspect]
     Active Substance: INSULIN ASPART
     Dosage: 50 IU, QD (17-17-16 IU/DAY) THIRD TRIMESTER PREGNANCY
     Route: 058
     Dates: start: 20160105
  2. LEVEMIR [Suspect]
     Active Substance: INSULIN DETEMIR
     Dosage: 31 IU, QD (24IU/MORNING, 7IU/EVENING) SECOND TRIMESTER PREGNANCY
     Route: 058
     Dates: start: 20151110
  3. LEVEMIR [Suspect]
     Active Substance: INSULIN DETEMIR
     Dosage: 32 IU, QD (24IU/MORNING, 8IU/EVENING) THIRD TRIMESTER PREGNANCY
     Route: 058
     Dates: start: 20160105
  4. LEVEMIR [Suspect]
     Active Substance: INSULIN DETEMIR
     Dosage: 36 IU, QD (22IU/MORNING, 14IU/EVENING) DAY OF VISIT TO THE REPORTING HOSPITAL
     Route: 058
     Dates: start: 20150318
  5. LEVEMIR [Suspect]
     Active Substance: INSULIN DETEMIR
     Dosage: 29 IU, QD (23IU/MORNING, 6IU/EVENING) EARLY PREGNANCY
     Route: 058
     Dates: start: 20150818
  6. NOVORAPID [Suspect]
     Active Substance: INSULIN ASPART
     Dosage: 12 IU, QD (4-4-4 IU/DAY) (DAY OF VISIT TO THE REPORTING HOSPITAL)
     Route: 058
     Dates: start: 20150318
  7. NOVORAPID [Suspect]
     Active Substance: INSULIN ASPART
     Dosage: 32 IU, QD (15-8-9IU/DAY)
     Route: 058
     Dates: start: 20160216
  8. LEVEMIR [Suspect]
     Active Substance: INSULIN DETEMIR
     Dosage: 27 IU, QD (19IU/MORNING, 8IU/EVENING).
     Route: 058
     Dates: start: 20160216
  9. NOVORAPID [Suspect]
     Active Substance: INSULIN ASPART
     Dosage: 18 IU, QD (6-6-6IU/DAY) EARLY PREGNANCY
     Route: 058
     Dates: start: 20150818
  10. LEVEMIR [Suspect]
     Active Substance: INSULIN DETEMIR
     Indication: TYPE 1 DIABETES MELLITUS
     Dosage: UNK
     Route: 058
  11. NOVORAPID [Suspect]
     Active Substance: INSULIN ASPART
     Indication: TYPE 1 DIABETES MELLITUS
     Dosage: UNK
     Route: 058
  12. NOVORAPID [Suspect]
     Active Substance: INSULIN ASPART
     Dosage: 27 IU, QD (9-9-9IU/DAY) SECOND TRIMESTER PREGNANCY
     Route: 058
     Dates: start: 20151110

REACTIONS (2)
  - Nonreassuring foetal heart rate pattern [Recovered/Resolved]
  - Exposure during pregnancy [Recovered/Resolved]

NARRATIVE: CASE EVENT DATE: 201602
